FAERS Safety Report 12780694 (Version 3)
Quarter: 2016Q4

REPORT INFORMATION
  Report Type: Spontaneous
  Country: US (occurrence: US)
  Receive Date: 20160926
  Receipt Date: 20161222
  Transmission Date: 20170207
  Serious: No
  Sender: FDA-Public Use
  Company Number: US-PFIZER INC-2016445420

PATIENT
  Age: 81 Year
  Sex: Female

DRUGS (2)
  1. IBRANCE [Suspect]
     Active Substance: PALBOCICLIB
     Dosage: 125 MG, UNK
     Dates: start: 20160916, end: 20161128
  2. FEMARA [Suspect]
     Active Substance: LETROZOLE
     Dosage: UNK

REACTIONS (7)
  - Hot flush [Unknown]
  - Diarrhoea [Unknown]
  - Bone pain [Unknown]
  - Nausea [Unknown]
  - Blood test abnormal [Unknown]
  - Musculoskeletal pain [Unknown]
  - Fatigue [Unknown]
